FAERS Safety Report 15496775 (Version 3)
Quarter: 2020Q1

REPORT INFORMATION
  Report Type: Report from Study
  Country: US (occurrence: US)
  Receive Date: 20181014
  Receipt Date: 20200324
  Transmission Date: 20200409
  Serious: No
  Sender: FDA-Public Use
  Company Number: PHEH2018US042136

PATIENT
  Sex: Male

DRUGS (1)
  1. GILENYA [Suspect]
     Active Substance: FINGOLIMOD HYDROCHLORIDE
     Indication: MULTIPLE SCLEROSIS
     Dosage: 0.5 MG, QD
     Route: 048
     Dates: start: 20180928, end: 20200312

REACTIONS (15)
  - Anxiety [Unknown]
  - Pain in extremity [Unknown]
  - Gait disturbance [Unknown]
  - Fall [Unknown]
  - Insomnia [Unknown]
  - Musculoskeletal pain [Unknown]
  - Abnormal behaviour [Unknown]
  - Limb discomfort [Unknown]
  - Anger [Unknown]
  - Speech disorder [Unknown]
  - Hypoaesthesia [Unknown]
  - Paraesthesia [Unknown]
  - Frustration tolerance decreased [Unknown]
  - Back pain [Unknown]
  - Diarrhoea [Unknown]
